FAERS Safety Report 9411546 (Version 1)
Quarter: 2013Q3

REPORT INFORMATION
  Report Type: Report from Study
  Country: JP (occurrence: JP)
  Receive Date: 20130722
  Receipt Date: 20130722
  Transmission Date: 20140515
  Serious: Yes (Hospitalization)
  Sender: FDA-Public Use
  Company Number: JP-ASTELLAS-2012JP004125

PATIENT
  Age: 36 Year
  Sex: Male
  Weight: 65 kg

DRUGS (21)
  1. TACROLIMUS CAPSULES [Suspect]
     Indication: COLITIS ULCERATIVE
     Dosage: 3.5 MG, BID
     Route: 048
     Dates: start: 20110716, end: 20110718
  2. TACROLIMUS CAPSULES [Suspect]
     Dosage: 2.5 MG, BID
     Route: 048
     Dates: start: 20110704, end: 20110705
  3. TACROLIMUS CAPSULES [Suspect]
     Dosage: 4.0 MG, BID
     Route: 048
     Dates: start: 20110705, end: 20110706
  4. TACROLIMUS CAPSULES [Suspect]
     Dosage: 3.0 MG, BID
     Route: 048
     Dates: start: 20110706, end: 20110709
  5. TACROLIMUS CAPSULES [Suspect]
     Dosage: 3.5 MG, BID
     Route: 048
     Dates: start: 20110709, end: 20110711
  6. TACROLIMUS CAPSULES [Suspect]
     Dosage: 4.0 MG, BID
     Route: 048
     Dates: start: 20110711, end: 20110713
  7. TACROLIMUS CAPSULES [Suspect]
     Dosage: 3.5 MG, BID
     Route: 048
     Dates: start: 20110713, end: 20110714
  8. TACROLIMUS CAPSULES [Suspect]
     Dosage: 3.0 MG, BID
     Route: 048
     Dates: start: 20110714, end: 20110715
  9. TACROLIMUS CAPSULES [Suspect]
     Dosage: 4.0 MG, BID
     Route: 048
     Dates: start: 20110719, end: 20110719
  10. TACROLIMUS CAPSULES [Suspect]
     Dosage: 4.5 MG, BID
     Route: 048
     Dates: start: 20110720, end: 20110720
  11. TACROLIMUS CAPSULES [Suspect]
     Dosage: 5.0 MG, BID
     Route: 048
     Dates: start: 20110721, end: 20110724
  12. TACROLIMUS CAPSULES [Suspect]
     Dosage: 6.0 MG, BID
     Route: 048
     Dates: start: 20110725, end: 20110725
  13. TACROLIMUS CAPSULES [Suspect]
     Dosage: 5.5 MG, BID
     Route: 048
     Dates: start: 20110726, end: 20110726
  14. TACROLIMUS CAPSULES [Suspect]
     Dosage: 3.0 MG, BID
     Route: 048
     Dates: start: 20110727, end: 20110804
  15. TACROLIMUS CAPSULES [Suspect]
     Dosage: 2.0 MG, BID
     Route: 048
     Dates: start: 20110805, end: 20110818
  16. TACROLIMUS CAPSULES [Suspect]
     Dosage: 2.5 MG, BID
     Route: 048
     Dates: start: 20110819, end: 20111003
  17. ASACOL [Concomitant]
     Indication: COLITIS ULCERATIVE
     Dosage: 1200 MG, TID
     Route: 048
     Dates: start: 20100902
  18. PARIET [Concomitant]
     Indication: PROPHYLAXIS
     Dosage: 10 MG, UNKNOWN/D
     Route: 048
     Dates: start: 20110513
  19. CORTICOSTEROID NOS [Concomitant]
     Indication: COLITIS ULCERATIVE
     Route: 065
  20. AZATHIOPRINE [Concomitant]
     Indication: COLITIS ULCERATIVE
     Route: 048
  21. REMICADE [Concomitant]
     Indication: COLITIS ULCERATIVE
     Route: 065

REACTIONS (4)
  - Renal disorder [Recovered/Resolved]
  - Hyperkalaemia [Recovered/Resolved]
  - Tremor [Recovered/Resolved]
  - Blood magnesium decreased [Recovered/Resolved]
